FAERS Safety Report 18797303 (Version 3)
Quarter: 2021Q1

REPORT INFORMATION
  Report Type: Report from Study
  Country: None (occurrence: US)
  Receive Date: 20210128
  Receipt Date: 20210204
  Transmission Date: 20210419
  Serious: Yes (Disabling, Other)
  Sender: FDA-Public Use
  Company Number: US-ABBVIE-21K-163-3745041-00

PATIENT
  Sex: Male
  Weight: 74 kg

DRUGS (25)
  1. ROCALTROL [Concomitant]
     Active Substance: CALCITRIOL
     Indication: VITAMIN D DEFICIENCY
  2. LEVOTHYROXINE. [Concomitant]
     Active Substance: LEVOTHYROXINE
     Indication: THYROID DISORDER
  3. CREON [Concomitant]
     Active Substance: PANCRELIPASE AMYLASE\PANCRELIPASE LIPASE\PANCRELIPASE PROTEASE
     Indication: PANCREATIC DISORDER
     Dates: start: 20190814
  4. ADDERALL [Concomitant]
     Active Substance: AMPHETAMINE ASPARTATE\AMPHETAMINE SULFATE\DEXTROAMPHETAMINE SACCHARATE\DEXTROAMPHETAMINE SULFATE
     Indication: SLEEP DISORDER
  5. IRON [Concomitant]
     Active Substance: IRON
     Indication: ANAEMIA
  6. TOPICORT [Concomitant]
     Active Substance: DESOXIMETASONE
     Indication: PSORIASIS
  7. LOMOTIL [Concomitant]
     Active Substance: ATROPINE SULFATE\DIPHENOXYLATE HYDROCHLORIDE
     Indication: DIARRHOEA
  8. ELAVIL [Concomitant]
     Active Substance: AMITRIPTYLINE HYDROCHLORIDE
     Indication: SLEEP DISORDER
  9. VITAMIN B12 [Concomitant]
     Active Substance: CYANOCOBALAMIN
     Indication: SUPPLEMENTATION THERAPY
  10. CORTEF [Concomitant]
     Active Substance: HYDROCORTISONE
     Indication: CROHN^S DISEASE
  11. ELAVIL [Concomitant]
     Active Substance: AMITRIPTYLINE HYDROCHLORIDE
     Indication: DEPRESSION
  12. MAGNESIUM OXIDE. [Concomitant]
     Active Substance: MAGNESIUM OXIDE
     Indication: BLOOD MAGNESIUM DECREASED
  13. HUMIRA [Suspect]
     Active Substance: ADALIMUMAB
     Indication: CROHN^S DISEASE
     Route: 058
     Dates: start: 200803
  14. WELLBUTRIN [Concomitant]
     Active Substance: BUPROPION HYDROCHLORIDE
     Indication: DEPRESSION
  15. ENSURE [Concomitant]
     Active Substance: AMINO ACIDS\DEXTROSE\ELECTROLYTES NOS\SOYBEAN OIL\VITAMINS
     Indication: NUTRITIONAL SUPPLEMENTATION
  16. EFFEXOR XR [Concomitant]
     Active Substance: VENLAFAXINE HYDROCHLORIDE
     Indication: DEPRESSION
  17. VITAMIN D3 [Concomitant]
     Active Substance: CHOLECALCIFEROL
     Indication: SUPPLEMENTATION THERAPY
  18. VOLTAREN [Concomitant]
     Active Substance: DICLOFENAC SODIUM
     Indication: ARTHRALGIA
  19. VITAMIN B6 [Concomitant]
     Active Substance: PYRIDOXINE HYDROCHLORIDE
     Indication: CROHN^S DISEASE
  20. POLYCITRA?K [Concomitant]
     Indication: NEPHROPATHY
  21. HYDROCORTISONE. [Concomitant]
     Active Substance: HYDROCORTISONE
     Indication: HAEMORRHOIDS
  22. MELATONIN [Concomitant]
     Active Substance: MELATONIN
     Indication: SLEEP DISORDER
  23. PRILOSEC [Concomitant]
     Active Substance: OMEPRAZOLE MAGNESIUM
     Indication: PANCREATITIS
  24. ZOFRAN [Concomitant]
     Active Substance: ONDANSETRON HYDROCHLORIDE
     Indication: NAUSEA
  25. FLOMAX [Concomitant]
     Active Substance: TAMSULOSIN HYDROCHLORIDE
     Indication: URETERIC REPAIR

REACTIONS (2)
  - Disability [Not Recovered/Not Resolved]
  - Crohn^s disease [Recovered/Resolved]

NARRATIVE: CASE EVENT DATE: 2010
